APPROVED DRUG PRODUCT: GOLYTELY
Active Ingredient: POLYETHYLENE GLYCOL 3350; POTASSIUM CHLORIDE; SODIUM BICARBONATE; SODIUM CHLORIDE; SODIUM SULFATE ANHYDROUS
Strength: 227.1GM/PACKET;2.82GM/PACKET;6.36GM/PACKET;5.53GM/PACKET;21.5GM/PACKET
Dosage Form/Route: FOR SOLUTION;ORAL
Application: N019011 | Product #002
Applicant: AZURITY PHARMACEUTICALS INC
Approved: Jun 2, 1992 | RLD: Yes | RS: No | Type: DISCN